FAERS Safety Report 6181197-2 (Version None)
Quarter: 2009Q2

REPORT INFORMATION
  Report Type: 
  Country: None (occurrence: None)
  Receive Date: 20090501
  Receipt Date: 20090323
  Transmission Date: 20091009
  Serious: No
  Sender: FDA-Public Use
  Company Number: 2009002253

PATIENT
  Sex: Female

DRUGS (2)
  1. TREANDA [Suspect]
     Indication: LYMPHOMA
     Dosage: (90 MG/M2, DAYS 1 AND 2), INTRAVENOUS
     Route: 042
     Dates: start: 20090226
  2. RITUXAN [Suspect]
     Indication: LYMPHOMA
     Dosage: (375 MG/M2)
     Dates: start: 20090226

REACTIONS (3)
  - LEUKOCYTOCLASTIC VASCULITIS [None]
  - SKIN DISCOLOURATION [None]
  - UNEVALUABLE EVENT [None]
